FAERS Safety Report 9264462 (Version 1)
Quarter: 2013Q2

REPORT INFORMATION
  Report Type: Report from Study
  Country: GB (occurrence: GB)
  Receive Date: 20130501
  Receipt Date: 20130501
  Transmission Date: 20140414
  Serious: Yes (Death)
  Sender: FDA-Public Use
  Company Number: GB-AMGEN-GBRCT2013030049

PATIENT
  Age: 77 Year
  Sex: Male

DRUGS (1)
  1. ETANERCEPT [Suspect]
     Indication: RHEUMATOID ARTHRITIS
     Dosage: 25 MG, 2X/WEEK
     Dates: start: 20091215

REACTIONS (4)
  - Gallbladder empyema [Fatal]
  - Atrial flutter [Fatal]
  - Pneumonia [Fatal]
  - Infectious pleural effusion [Fatal]
